FAERS Safety Report 6967667-5 (Version None)
Quarter: 2010Q3

REPORT INFORMATION
  Report Type: 
  Country: None (occurrence: None)
  Receive Date: 20100907
  Receipt Date: 20100821
  Transmission Date: 20110219
  Serious: No
  Sender: FDA-Public Use
  Company Number: US-PFIZER INC-2010106130

PATIENT
  Sex: Female

DRUGS (1)
  1. TOVIAZ [Suspect]
     Indication: HYPERTONIC BLADDER
     Dosage: 20 MG, UNK
     Route: 048
     Dates: start: 20090901, end: 20100701

REACTIONS (1)
  - CONTRAINDICATION TO MEDICAL TREATMENT [None]
